FAERS Safety Report 7081415-2 (Version None)
Quarter: 2010Q4

REPORT INFORMATION
  Report Type: 
  Country: None (occurrence: None)
  Receive Date: 20101102
  Receipt Date: 20101102
  Transmission Date: 20110411
  Serious: Yes (Hospitalization)
  Sender: FDA-Public Use
  Company Number: None

PATIENT
  Age: 56 Year
  Sex: Male
  Weight: 102.0593 kg

DRUGS (3)
  1. LISINOPRIL [Suspect]
     Indication: HYPERTENSION
     Dosage: ONE DAILY FDAILY IM
     Route: 030
     Dates: start: 20090101, end: 20101031
  2. PREDNISONE [Concomitant]
  3. FAMOTIDINE [Concomitant]

REACTIONS (5)
  - HEART RATE IRREGULAR [None]
  - LIP SWELLING [None]
  - PAIN [None]
  - SCROTAL SWELLING [None]
  - SWELLING FACE [None]
